FAERS Safety Report 16969510 (Version 21)
Quarter: 2020Q1

REPORT INFORMATION
  Report Type: Report from Study
  Country: CN (occurrence: CN)
  Receive Date: 20191029
  Receipt Date: 20200312
  Transmission Date: 20200409
  Serious: Yes (Hospitalization)
  Sender: FDA-Public Use
  Company Number: CN-EISAI MEDICAL RESEARCH-EC-2019-064326

PATIENT
  Age: 62 Year
  Sex: Male
  Weight: 69 kg

DRUGS (11)
  1. TENOFOVIR DISOPROXIL FUMARATE. [Concomitant]
     Active Substance: TENOFOVIR DISOPROXIL FUMARATE
     Dates: start: 201906
  2. INSULIN GLARGINE [Concomitant]
     Active Substance: INSULIN GLARGINE
     Dates: start: 200801
  3. ESTAZOLAM. [Concomitant]
     Active Substance: ESTAZOLAM
     Dates: start: 20190812
  4. PLACEBO [Suspect]
     Active Substance: UNSPECIFIED INGREDIENT
     Indication: HEPATOCELLULAR CARCINOMA
     Route: 041
     Dates: start: 20190619, end: 20190911
  5. CALCIUM DOBESILATE [Concomitant]
     Active Substance: CALCIUM DOBESILATE
     Dates: start: 201401
  6. LENVATINIB [Suspect]
     Active Substance: LENVATINIB
     Dosage: (BODY WEIGHT (BW) GREATER THAN OR EQUAL TO 60 KG)
     Route: 048
     Dates: start: 20191029
  7. INSULIN LISPRO [Concomitant]
     Active Substance: INSULIN LISPRO
     Dates: start: 200801, end: 20191112
  8. VALSARTAN. [Concomitant]
     Active Substance: VALSARTAN
     Dates: start: 20190703, end: 20191023
  9. LENVATINIB [Suspect]
     Active Substance: LENVATINIB
     Indication: HEPATOCELLULAR CARCINOMA
     Dosage: (BODY WEIGHT (BW) GREATER THAN OR EQUAL TO 60 KG)
     Route: 048
     Dates: start: 20190619, end: 20191023
  10. PLACEBO [Suspect]
     Active Substance: UNSPECIFIED INGREDIENT
     Route: 041
     Dates: start: 20190929, end: 20190929
  11. AMLODIPINE BESYLATE. [Concomitant]
     Active Substance: AMLODIPINE BESYLATE
     Dates: start: 20190929

REACTIONS (1)
  - Heart injury [Not Recovered/Not Resolved]

NARRATIVE: CASE EVENT DATE: 20191021
